FAERS Safety Report 9100722 (Version 1)
Quarter: 2013Q1

REPORT INFORMATION
  Report Type: Spontaneous
  Country: US (occurrence: US)
  Receive Date: 20130215
  Receipt Date: 20130215
  Transmission Date: 20140127
  Serious: Yes (Hospitalization, Other)
  Sender: FDA-Public Use
  Company Number: US-009507513-2012SP023302

PATIENT
  Age: 57 Year
  Sex: Male

DRUGS (7)
  1. VICTRELIS [Suspect]
     Dosage: 200 MG, Q8H
     Route: 048
  2. RIBAVIRIN (WARRICK) [Suspect]
     Dosage: UNK UNK, QD
     Route: 048
  3. PEGINTRON [Suspect]
     Dosage: 150 ?G, UNK
     Route: 058
  4. OMEGA-3 MARINE TRIGLYCERIDES [Concomitant]
     Indication: PRODUCT USED FOR UNKNOWN INDICATION
  5. EPOETIN ALFA [Concomitant]
     Indication: PRODUCT USED FOR UNKNOWN INDICATION
  6. AMLODIPINE [Concomitant]
     Indication: PRODUCT USED FOR UNKNOWN INDICATION
  7. LISINOPRIL [Concomitant]
     Indication: PRODUCT USED FOR UNKNOWN INDICATION

REACTIONS (5)
  - Eye haemorrhage [Unknown]
  - Loss of consciousness [Unknown]
  - Cerebrovascular accident [Unknown]
  - Papilloedema [Unknown]
  - Anaemia [Unknown]
